FAERS Safety Report 6415399-4 (Version None)
Quarter: 2009Q4

REPORT INFORMATION
  Report Type: 
  Country: None (occurrence: None)
  Receive Date: 20091022
  Receipt Date: 20091013
  Transmission Date: 20100525
  Serious: Yes (Hospitalization)
  Sender: FDA-Public Use
  Company Number: MC200900362

PATIENT
  Age: 75 Year
  Sex: Female
  Weight: 70 kg

DRUGS (8)
  1. ANGIOMAX [Suspect]
     Indication: ACUTE MYOCARDIAL INFARCTION
     Dosage: 7 MG, BOLUS, INTRAVENOUS; 35 MG, BOLUS, INTRAVENOUS; 17.5 MG, INTRAVENOUS; 122 MG, INTRAVENOUS
     Route: 042
     Dates: start: 20090811, end: 20090811
  2. ANGIOMAX [Suspect]
     Indication: ACUTE MYOCARDIAL INFARCTION
     Dosage: 7 MG, BOLUS, INTRAVENOUS; 35 MG, BOLUS, INTRAVENOUS; 17.5 MG, INTRAVENOUS; 122 MG, INTRAVENOUS
     Route: 042
     Dates: start: 20090811, end: 20090811
  3. ANGIOMAX [Suspect]
     Indication: ACUTE MYOCARDIAL INFARCTION
     Dosage: 7 MG, BOLUS, INTRAVENOUS; 35 MG, BOLUS, INTRAVENOUS; 17.5 MG, INTRAVENOUS; 122 MG, INTRAVENOUS
     Route: 042
     Dates: start: 20090811, end: 20090811
  4. ANGIOMAX [Suspect]
     Indication: ACUTE MYOCARDIAL INFARCTION
     Dosage: 7 MG, BOLUS, INTRAVENOUS; 35 MG, BOLUS, INTRAVENOUS; 17.5 MG, INTRAVENOUS; 122 MG, INTRAVENOUS
     Route: 042
     Dates: start: 20090811, end: 20090811
  5. ANGIOMAX [Suspect]
     Indication: ACUTE MYOCARDIAL INFARCTION
     Dosage: 7 MG, BOLUS, INTRAVENOUS; 35 MG, BOLUS, INTRAVENOUS; 17.5 MG, INTRAVENOUS; 122 MG, INTRAVENOUS
     Route: 042
     Dates: start: 20090811, end: 20090811
  6. ASPIRIN [Suspect]
     Indication: ACUTE CORONARY SYNDROME
     Dosage: 100 MG, ORAL
     Route: 048
     Dates: start: 20090812
  7. CLOPIDOGREL [Suspect]
     Indication: ACUTE CORONARY SYNDROME
     Dosage: 75 MG,  ORAL
     Route: 048
     Dates: start: 20090812
  8. ENOXAPARIN SODIUM [Suspect]
     Indication: ACUTE CORONARY SYNDROME
     Dosage: 120 MG,SUBCUTANEOUS
     Route: 058
     Dates: start: 20090812

REACTIONS (3)
  - FAECES DISCOLOURED [None]
  - HAEMOGLOBIN DECREASED [None]
  - NAUSEA [None]
